FAERS Safety Report 10793493 (Version 1)
Quarter: 2015Q1

REPORT INFORMATION
  Report Type: Spontaneous
  Country: US (occurrence: None)
  Receive Date: 20150212
  Receipt Date: 20150212
  Transmission Date: 20150721
  Serious: Yes (Hospitalization)
  Sender: FDA-Public Use
  Company Number: None

PATIENT
  Age: 52 Year
  Sex: Male
  Weight: 105.73 kg

DRUGS (1)
  1. HARVONI [Suspect]
     Active Substance: LEDIPASVIR\SOFOSBUVIR
     Route: 048
     Dates: start: 20141121

REACTIONS (5)
  - Confusional state [None]
  - Pneumonia [None]
  - Hallucinations, mixed [None]
  - Upper respiratory tract infection [None]
  - Encephalopathy [None]

NARRATIVE: CASE EVENT DATE: 20150103
